FAERS Safety Report 17214553 (Version 1)
Quarter: 2019Q4

REPORT INFORMATION
  Report Type: Spontaneous
  Country: NL (occurrence: NL)
  Receive Date: 20191230
  Receipt Date: 20191230
  Transmission Date: 20200122
  Serious: Yes (Hospitalization)
  Sender: FDA-Public Use
  Company Number: NL-MYLANLABS-2019M1127600

PATIENT
  Age: 71 Year
  Sex: Female
  Weight: 84 kg

DRUGS (11)
  1. FOLIUMZUUR [Concomitant]
     Active Substance: FOLIC ACID
     Dosage: ORAAL; NIET OP VRIJDAG 1 STUK
     Route: 048
  2. METOPROLOL                         /00376903/ [Concomitant]
     Active Substance: METOPROLOL SUCCINATE
     Dosage: ORAAL; 1 X PER DAG 1 STUK
     Route: 048
  3. NIFEDIPINE. [Concomitant]
     Active Substance: NIFEDIPINE
     Dosage: ORAAL; 1 X PER DAG 1 STUK
     Route: 048
  4. URSODEOXYCHOLZUUR [Concomitant]
     Dosage: ORAAL; 1 X PER DAG 1 STUK
     Route: 048
  5. METHOTREXAAT                       /00113801/ [Concomitant]
     Active Substance: METHOTREXATE SODIUM
     Dosage: 20 MILLIGRAM, QW, SUBCUTAAN; ALLEEN OP VRIJDAG 20 MILLIGRAM
     Route: 058
  6. CLINDAMYCIN. [Suspect]
     Active Substance: CLINDAMYCIN
     Indication: ERYSIPELAS
     Dosage: 600 MILLIGRAM, Q8H
     Route: 048
     Dates: start: 20190822, end: 20190823
  7. CALCIUM CARBONATE W/COLECALCIFEROL//06866701/ [Concomitant]
     Dosage: 1 DOSAGE FORM, QD, ORAAL; 1 X PER DAG 1 STUK
     Route: 048
  8. MOMETASON [Concomitant]
     Active Substance: MOMETASONE FUROATE
     Dosage: 1 DOSAGE FORM, QD, CUTAAN; 1X DAAGS SMEREN 1 X PER DAG
     Route: 003
  9. OMEPRAZOL                          /00661201/ [Concomitant]
     Active Substance: OMEPRAZOLE
     Dosage: ORAAL; 1 X PER DAG 1 STUK
     Route: 048
  10. IRBESARTAN. [Concomitant]
     Active Substance: IRBESARTAN
     Dosage: ORAAL; 1 X PER DAG 1 STUK
     Route: 048
  11. HYDROXYCHLOROQUINE [Concomitant]
     Active Substance: HYDROXYCHLOROQUINE
     Dosage: ORAAL; 2 X PER DAG 1 STUK
     Route: 048

REACTIONS (1)
  - Chest discomfort [Recovered/Resolved]

NARRATIVE: CASE EVENT DATE: 20190822
